FAERS Safety Report 7723517-0 (Version None)
Quarter: 2011Q3

REPORT INFORMATION
  Report Type: 
  Country: None (occurrence: None)
  Receive Date: 20110901
  Receipt Date: 20110822
  Transmission Date: 20111222
  Serious: Yes (Hospitalization)
  Sender: FDA-Public Use
  Company Number: US-VIROPHARMA INCORPORATED-20110807CINRY2167

PATIENT
  Sex: Male

DRUGS (5)
  1. CINRYZE [Suspect]
     Indication: HEREDITARY ANGIOEDEMA
     Dates: start: 20090101
  2. HYDROXYZINE [Concomitant]
     Indication: HYPERSENSITIVITY
     Route: 048
  3. FEXOFENADINE [Concomitant]
     Indication: HYPERSENSITIVITY
     Route: 048
  4. BENADRYL [Concomitant]
     Indication: URTICARIA
  5. SUMATRIPTAN SUCCINATE [Concomitant]
     Indication: MIGRAINE

REACTIONS (11)
  - INAPPROPRIATE SCHEDULE OF DRUG ADMINISTRATION [None]
  - STAPHYLOCOCCAL INFECTION [None]
  - DRUG DOSE OMISSION [None]
  - PSEUDOMONAS INFECTION [None]
  - FORMICATION [None]
  - WEIGHT INCREASED [None]
  - URTICARIA [None]
  - INFUSION RELATED REACTION [None]
  - DEVICE RELATED INFECTION [None]
  - HEREDITARY ANGIOEDEMA [None]
  - VISUAL IMPAIRMENT [None]
